FAERS Safety Report 10418998 (Version 1)
Quarter: 2014Q2

REPORT INFORMATION
  Report Type: Spontaneous
  Country: US (occurrence: None)
  Receive Date: 20140625
  Receipt Date: 20140625
  Transmission Date: 20141212
  Serious: No
  Sender: FDA-Public Use
  Company Number: A-US2014-96107

PATIENT
  Age: 52 Year
  Sex: Female

DRUGS (1)
  1. OPSUMIT (MACITENTAN) [Suspect]
     Indication: PULMONARY ARTERIAL HYPERTENSION
     Route: 048
     Dates: end: 20140317

REACTIONS (4)
  - Pulmonary arterial pressure increased [None]
  - Chest pain [None]
  - Drug intolerance [None]
  - Treatment noncompliance [None]
